FAERS Safety Report 13929515 (Version 1)
Quarter: 2017Q3

REPORT INFORMATION
  Report Type: Spontaneous
  Country: US (occurrence: US)
  Receive Date: 20170901
  Receipt Date: 20170901
  Transmission Date: 20171127
  Serious: Yes (Other)
  Sender: FDA-Public Use
  Company Number: US-LPDUSPRD-20171205

PATIENT

DRUGS (2)
  1. GEMCITABINE [Suspect]
     Active Substance: GEMCITABINE\GEMCITABINE HYDROCHLORIDE
     Dosage: UNKNOWN
     Route: 065
  2. NAB-PACLITAXEL [Concomitant]
     Active Substance: PACLITAXEL
     Dosage: UNKNOWN
     Route: 065

REACTIONS (1)
  - Thrombocytopenic purpura [Unknown]
